FAERS Safety Report 11886828 (Version 1)
Quarter: 2016Q1

REPORT INFORMATION
  Report Type: Spontaneous
  Country: US (occurrence: US)
  Receive Date: 20160104
  Receipt Date: 20160104
  Transmission Date: 20160526
  Serious: No
  Sender: FDA-Public Use
  Company Number: US-APOTEX-2015AP013257

PATIENT

DRUGS (1)
  1. CITALOPRAM [Suspect]
     Active Substance: CITALOPRAM HYDROBROMIDE
     Indication: OVERDOSE
     Dosage: 10.77 MG/KG, SINGLE
     Route: 048

REACTIONS (2)
  - Overdose [Unknown]
  - Somnolence [Unknown]
